FAERS Safety Report 6734402-5 (Version None)
Quarter: 2010Q2

REPORT INFORMATION
  Report Type: 
  Country: None (occurrence: None)
  Receive Date: 20100520
  Receipt Date: 20100510
  Transmission Date: 20101027
  Serious: Yes (Death)
  Sender: FDA-Public Use
  Company Number: DE-BAXTER-2010BH012882

PATIENT

DRUGS (1)
  1. DIANEAL PD-1 [Suspect]
     Indication: RENAL FAILURE
     Route: 033

REACTIONS (1)
  - DEATH [None]
